FAERS Safety Report 25760165 (Version 1)
Quarter: 2025Q3

REPORT INFORMATION
  Report Type: Report from Study
  Country: CA (occurrence: None)
  Receive Date: 20250904
  Receipt Date: 20250904
  Transmission Date: 20251021
  Serious: Yes (Death)
  Sender: ORION
  Company Number: CA-PFIZER INC-202500174446

PATIENT
  Age: 83 Year
  Sex: Female

DRUGS (7)
  1. METHOTREXATE [Suspect]
     Active Substance: METHOTREXATE
     Indication: Product used for unknown indication
  2. CERTOLIZUMAB PEGOL [Suspect]
     Active Substance: CERTOLIZUMAB PEGOL
     Indication: Rheumatoid arthritis
  3. CERTOLIZUMAB PEGOL [Suspect]
     Active Substance: CERTOLIZUMAB PEGOL
  4. ATENOLOL [Concomitant]
     Active Substance: ATENOLOL
  5. MICARDIS [Concomitant]
     Active Substance: TELMISARTAN
  6. MICARDIS [Concomitant]
     Active Substance: TELMISARTAN
  7. TYLENOL [Concomitant]
     Active Substance: ACETAMINOPHEN

REACTIONS (3)
  - Product dose omission issue [Fatal]
  - Death [Fatal]
  - Urinary tract infection [Fatal]
